FAERS Safety Report 7678029-X (Version None)
Quarter: 2011Q3

REPORT INFORMATION
  Report Type: 
  Country: None (occurrence: None)
  Receive Date: 20110811
  Receipt Date: 20110801
  Transmission Date: 20111222
  Serious: Yes (Hospitalization)
  Sender: FDA-Public Use
  Company Number: FR-GLAXOSMITHKLINE-B0736208A

PATIENT
  Sex: Male

DRUGS (7)
  1. ONDANSERTRON HYDROCHLORIDE [Suspect]
     Indication: PROPHYLAXIS
     Route: 065
     Dates: start: 20110614, end: 20110619
  2. ALFUZOSIN HCL [Concomitant]
     Dosage: 10MG PER DAY
     Dates: start: 20091101
  3. AVODART [Concomitant]
     Dosage: .5MG PER DAY
     Dates: start: 20091101
  4. DACARBAZINE [Suspect]
     Indication: MELANOMA RECURRENT
     Route: 042
     Dates: start: 20110614, end: 20110615
  5. RAMIPRIL [Concomitant]
     Dosage: 5MG IN THE MORNING
     Dates: start: 20110101
  6. CRESTOR [Concomitant]
     Dosage: 5MG AT NIGHT
     Dates: start: 20051101
  7. ACETAMINOPHEN [Concomitant]

REACTIONS (4)
  - HEPATITIS [None]
  - CHOLESTASIS [None]
  - HEPATOCELLULAR INJURY [None]
  - EOSINOPHILIA [None]
